FAERS Safety Report 18056160 (Version 3)
Quarter: 2020Q4

REPORT INFORMATION
  Report Type: Report from Study
  Country: CA (occurrence: CA)
  Receive Date: 20200722
  Receipt Date: 20201120
  Transmission Date: 20210113
  Serious: Yes (Death, Hospitalization, Other)
  Sender: FDA-Public Use
  Company Number: CA-JNJFOC-20200536441

PATIENT
  Age: 79 Year
  Sex: Male
  Weight: 100 kg

DRUGS (2)
  1. REMICADE [Suspect]
     Active Substance: INFLIXIMAB
     Indication: COLITIS ULCERATIVE
     Dosage: LAST DOSE INFUSED ON 12/FEB/2020
     Route: 042
     Dates: start: 20160809, end: 20200618
  2. REMICADE [Suspect]
     Active Substance: INFLIXIMAB
     Dosage: 0,2,6 WEEKS THEN RESUME AT EVERY 8 WEEKS
     Route: 042
     Dates: end: 20200618

REACTIONS (8)
  - Death [Fatal]
  - Colitis ulcerative [Unknown]
  - Fall [Unknown]
  - Infection [Recovered/Resolved]
  - Neutropenic infection [Unknown]
  - Confusional state [Unknown]
  - Blood count abnormal [Unknown]
  - Head injury [Unknown]

NARRATIVE: CASE EVENT DATE: 2020
